FAERS Safety Report 6681670-4 (Version None)
Quarter: 2010Q2

REPORT INFORMATION
  Report Type: 
  Country: None (occurrence: None)
  Receive Date: 20100409
  Receipt Date: 20100326
  Transmission Date: 20101027
  Serious: Yes (Hospitalization)
  Sender: FDA-Public Use
  Company Number: DSA_42893_2010

PATIENT
  Age: 79 Year
  Sex: Female

DRUGS (2)
  1. MONO-TILDIEM (MONO-TILDEM-DILTIAZEM HYDROCHLORIDE) (NOT SPECIFIED) [Suspect]
     Indication: HYPERTENSION
     Dosage: (200 MG QD ORAL)
     Route: 048
     Dates: start: 20080101, end: 20100315
  2. ARICEPT [Suspect]
     Indication: DEMENTIA ALZHEIMER'S TYPE
     Dosage: (10 MG QD ORAL)
     Route: 048
     Dates: start: 20090101, end: 20100315

REACTIONS (5)
  - BRADYCARDIA [None]
  - DRUG INTERACTION [None]
  - FEELING DRUNK [None]
  - MALAISE [None]
  - SINOATRIAL BLOCK [None]
